FAERS Safety Report 8792425 (Version 2)
Quarter: 2013Q2

REPORT INFORMATION
  Report Type: Spontaneous
  Country: DE (occurrence: DE)
  Receive Date: 20120918
  Receipt Date: 20130424
  Transmission Date: 20140414
  Serious: Yes (Life-Threatening, Hospitalization)
  Sender: FDA-Public Use
  Company Number: GXKR2012DE002939

PATIENT
  Sex: 0

DRUGS (10)
  1. METFORMIN [Suspect]
     Indication: TYPE 2 DIABETES MELLITUS
     Dosage: 2.5 G/DAY (1000-1000-500 MG)
     Route: 048
     Dates: start: 20100521
  2. METFORMIN [Suspect]
     Dosage: 500 MG, BID
     Route: 048
  3. JANUVIA [Concomitant]
     Dosage: 100 MG, QD
     Dates: start: 20100526
  4. ACETYLSALICYLIC ACID [Concomitant]
     Dosage: 100 MG, QD
     Dates: start: 20100512
  5. CARVEDILOL [Concomitant]
     Dosage: 6.25 MG, BID
     Dates: start: 20100512
  6. AMLODIPINE [Concomitant]
     Dosage: 15 MG/DAY
     Dates: start: 20100512
  7. TORASEMIDE [Concomitant]
     Dosage: 15 MG/DAY
     Dates: start: 20100512
  8. RAMIPRIL COMP [Concomitant]
     Dosage: 1 DF, BID
     Dates: start: 20100512
  9. CLONIDINE [Concomitant]
     Dosage: 10 MG, BID
     Dates: start: 20100512
  10. CLONIDINE [Concomitant]
     Dosage: 75 MG, BID

REACTIONS (3)
  - Lactic acidosis [Recovered/Resolved]
  - Renal failure acute [Recovered/Resolved]
  - Drug level above therapeutic [Unknown]
